FAERS Safety Report 14426111 (Version 2)
Quarter: 2018Q3

REPORT INFORMATION
  Report Type: Report from Study
  Country: US (occurrence: US)
  Receive Date: 20180123
  Receipt Date: 20180729
  Transmission Date: 20181010
  Serious: Yes (Other)
  Sender: FDA-Public Use
  Company Number: PHHY2017US007190

PATIENT
  Age: 41 Year
  Sex: Female

DRUGS (2)
  1. PROPANOLOL [Concomitant]
     Active Substance: PROPRANOLOL HYDROCHLORIDE
     Indication: ANXIETY
     Dosage: UNK
     Route: 065
     Dates: start: 20171006
  2. GILENYA [Suspect]
     Active Substance: FINGOLIMOD HYDROCHLORIDE
     Indication: MULTIPLE SCLEROSIS
     Dosage: UNK, QD
     Route: 048

REACTIONS (19)
  - Premenstrual dysphoric disorder [Unknown]
  - Lymphocyte count decreased [Unknown]
  - Melanocytic naevus [Unknown]
  - Tinea versicolour [Unknown]
  - Fatigue [Recovered/Resolved]
  - Pelvic discomfort [Unknown]
  - Neutropenia [Unknown]
  - White blood cell count decreased [Unknown]
  - Menorrhagia [Unknown]
  - Pelvic pain [Unknown]
  - Haemangioma of skin [Unknown]
  - Musculoskeletal stiffness [Recovered/Resolved]
  - Gait disturbance [Recovered/Resolved]
  - Iron deficiency [Unknown]
  - Premenstrual syndrome [Unknown]
  - Uterine leiomyoma [Unknown]
  - Fatigue [Recovered/Resolved]
  - Limb discomfort [Recovered/Resolved]
  - Vision blurred [Recovered/Resolved]

NARRATIVE: CASE EVENT DATE: 20161107
